FAERS Safety Report 19788242 (Version 11)
Quarter: 2022Q1

REPORT INFORMATION
  Report Type: Report from Study
  Country: CO (occurrence: None)
  Receive Date: 20210903
  Receipt Date: 20220113
  Transmission Date: 20220423
  Serious: Yes (Hospitalization)
  Sender: FDA-Public Use
  Company Number: CO-EISAI MEDICAL RESEARCH-EC-2021-098451

PATIENT
  Age: 49 Year
  Sex: Female
  Weight: 50.3 kg

DRUGS (16)
  1. LENVATINIB [Suspect]
     Active Substance: LENVATINIB
     Indication: Pancreatic carcinoma
     Route: 048
     Dates: start: 20210603, end: 20210816
  2. LENVATINIB [Suspect]
     Active Substance: LENVATINIB
     Route: 048
     Dates: start: 20210824, end: 20210914
  3. PEMBROLIZUMAB [Suspect]
     Active Substance: PEMBROLIZUMAB
     Indication: Pancreatic carcinoma
     Route: 041
     Dates: start: 20210603, end: 20210727
  4. PEMBROLIZUMAB [Suspect]
     Active Substance: PEMBROLIZUMAB
     Route: 041
     Dates: start: 20210824, end: 20210824
  5. INSULIN HUMAN [Concomitant]
     Active Substance: INSULIN HUMAN
     Route: 058
     Dates: start: 20210115, end: 20210929
  6. INSULIN GLARGINE [Concomitant]
     Active Substance: INSULIN GLARGINE
     Route: 058
     Dates: start: 20210115
  7. BUTYLSCOPOLAMINE BROMIDE [Concomitant]
     Active Substance: BUTYLSCOPOLAMINE BROMIDE
     Dates: start: 20210115, end: 20210829
  8. OMEPRAZOLE [Concomitant]
     Active Substance: OMEPRAZOLE
     Dates: start: 20210624
  9. OXYCODONE [Concomitant]
     Active Substance: OXYCODONE
     Dates: start: 20210707, end: 20210821
  10. OXYCODONE [Concomitant]
     Active Substance: OXYCODONE
     Dates: start: 20210822, end: 20210829
  11. ENOXAPARIN SODIUM [Concomitant]
     Active Substance: ENOXAPARIN SODIUM
     Dates: start: 20210708, end: 20210829
  12. PANCREATIN [Concomitant]
     Active Substance: PANCRELIPASE
     Dates: start: 20210115
  13. ACETAMINOPHEN [Concomitant]
     Active Substance: ACETAMINOPHEN
     Dates: start: 20210115, end: 20210830
  14. SALICYLIC ACID [Concomitant]
     Active Substance: SALICYLIC ACID
     Dates: start: 20210515
  15. METFORMIN [Concomitant]
     Active Substance: METFORMIN HYDROCHLORIDE
     Dates: start: 20210728, end: 20210929
  16. LEVOTHYROXINE SODIUM [Concomitant]
     Active Substance: LEVOTHYROXINE SODIUM
     Dates: start: 20210817

REACTIONS (1)
  - Dehydration [Recovered/Resolved]

NARRATIVE: CASE EVENT DATE: 20210830
